FAERS Safety Report 5512643-2 (Version None)
Quarter: 2007Q4

REPORT INFORMATION
  Report Type: 
  Country: None (occurrence: None)
  Receive Date: 20071108
  Receipt Date: 20071108
  Transmission Date: 20080405
  Serious: Yes (Other)
  Sender: FDA-Public Use
  Company Number: None

PATIENT
  Age: 47 Year
  Sex: Female
  Weight: 65.7716 kg

DRUGS (1)
  1. ONE A DAY WEIGHT SMART ADVANCED VARIOUS BAYER HEALTHCARE [Suspect]
     Indication: ILL-DEFINED DISORDER
     Dosage: 1 DAILY PO
     Route: 048
     Dates: start: 20071026, end: 20071105

REACTIONS (2)
  - HYPERTENSION [None]
  - PALPITATIONS [None]
